FAERS Safety Report 12634005 (Version 1)
Quarter: 2016Q3

REPORT INFORMATION
  Report Type: Report from Study
  Country: BR (occurrence: BR)
  Receive Date: 20160808
  Receipt Date: 20160808
  Transmission Date: 20161109
  Serious: Yes (Hospitalization, Other)
  Sender: FDA-Public Use
  Company Number: BR-ABBVIE-16K-020-1587696-00

PATIENT
  Age: 39 Year
  Sex: Male
  Weight: 95 kg

DRUGS (4)
  1. HUMIRA [Suspect]
     Active Substance: ADALIMUMAB
     Route: 058
  2. OMEPRAZOLE. [Concomitant]
     Active Substance: OMEPRAZOLE
     Indication: PROPHYLAXIS
  3. HUMIRA [Suspect]
     Active Substance: ADALIMUMAB
     Indication: RHEUMATOID ARTHRITIS
     Route: 058
     Dates: start: 20150717
  4. OMEPRAZOLE. [Concomitant]
     Active Substance: OMEPRAZOLE
     Indication: GASTRIC DISORDER
     Route: 048
     Dates: start: 201603

REACTIONS (11)
  - Gait disturbance [Not Recovered/Not Resolved]
  - Loss of consciousness [Recovered/Resolved]
  - Traumatic haemorrhage [Recovered/Resolved]
  - Device breakage [Not Recovered/Not Resolved]
  - Memory impairment [Unknown]
  - Tracheal stenosis [Recovering/Resolving]
  - Road traffic accident [Recovering/Resolving]
  - Lower limb fracture [Recovering/Resolving]
  - Device loosening [Not Recovered/Not Resolved]
  - Seizure [Recovered/Resolved]
  - Syncope [Recovered/Resolved]

NARRATIVE: CASE EVENT DATE: 2016
